FAERS Safety Report 6491585-2 (Version None)
Quarter: 2009Q4

REPORT INFORMATION
  Report Type: 
  Country: None (occurrence: None)
  Receive Date: 20091211
  Receipt Date: 20091130
  Transmission Date: 20100525
  Serious: Yes (Hospitalization)
  Sender: FDA-Public Use
  Company Number: GB-GILEAD-2009-0025737

PATIENT
  Age: 34 Year
  Sex: Male
  Weight: 61.8 kg

DRUGS (4)
  1. TRUVADA [Suspect]
     Indication: HIV INFECTION
  2. SUSTIVA [Suspect]
     Dates: start: 20070110
  3. ZOPICLONE [Suspect]
     Route: 048
  4. CANNABIS [Suspect]

REACTIONS (4)
  - ACCIDENTAL OVERDOSE [None]
  - IMPULSIVE BEHAVIOUR [None]
  - SOMNOLENCE [None]
  - SUICIDE ATTEMPT [None]
